FAERS Safety Report 8774674 (Version 1)
Quarter: 2012Q4

REPORT INFORMATION
  Report Type: 
  Country: US (occurrence: US)
  Receive Date: 20120910
  Receipt Date: 20120910
  Transmission Date: 20130627
  Serious: No
  Sender: FDA-Public Use
  Company Number: US-PFIZER INC-2012218840

PATIENT
  Age: 60 Year
  Sex: Female
  Weight: 52.15 kg

DRUGS (1)
  1. PREMARIN [Suspect]
     Indication: ENDOCRINE DISORDER
     Dosage: 1.25 mg, 1x/day
     Route: 048

REACTIONS (1)
  - Arthritis [Unknown]
